FAERS Safety Report 7378234-6 (Version None)
Quarter: 2011Q1

REPORT INFORMATION
  Report Type: 
  Country: None (occurrence: None)
  Receive Date: 20110328
  Receipt Date: 20110321
  Transmission Date: 20110831
  Serious: Yes (Other)
  Sender: FDA-Public Use
  Company Number: B0685830A

PATIENT
  Age: 35 Year
  Sex: Male

DRUGS (2)
  1. UNKNOWN [Concomitant]
  2. CITALOPRAM HYDROBROMIDE [Suspect]
     Dosage: 10MG UNKNOWN
     Route: 065

REACTIONS (2)
  - SELF-MEDICATION [None]
  - SUICIDAL IDEATION [None]
